FAERS Safety Report 5794338-3 (Version None)
Quarter: 2008Q2

REPORT INFORMATION
  Report Type: 
  Country: None (occurrence: None)
  Receive Date: 20080625
  Receipt Date: 20080610
  Transmission Date: 20081010
  Serious: Yes (Death, Other)
  Sender: FDA-Public Use
  Company Number: PERC20080054

PATIENT
  Age: 46 Year
  Sex: Female

DRUGS (8)
  1. PERCOCET [Suspect]
     Indication: BACK PAIN
     Dosage: 1 TABLET TWICE DAILY, PER ORAL
     Route: 048
     Dates: end: 20080101
  2. MS CONTIN [Suspect]
     Indication: BACK PAIN
     Dosage: 30 MG, Q12H
     Dates: end: 20080101
  3. PEG-INTRON [Suspect]
     Indication: HEPATITIS C
     Dosage: 96 MCG WEEKLY, SUBCUTANEOUS
     Route: 058
     Dates: start: 20071010, end: 20080101
  4. RIBAVIRIN [Suspect]
     Indication: HEPATITIS C
     Dosage: 1000 MG, DAILY, PER ORAL
     Route: 048
     Dates: start: 20071010, end: 20080101
  5. CELEXA [Concomitant]
  6. VALIUM [Concomitant]
  7. TRAZODONE HCL [Concomitant]
  8. PREVACID [Concomitant]

REACTIONS (9)
  - ANAEMIA [None]
  - CONDITION AGGRAVATED [None]
  - DEPRESSION [None]
  - FATIGUE [None]
  - INSOMNIA [None]
  - MALAISE [None]
  - NAUSEA [None]
  - RESPIRATORY DEPRESSION [None]
  - UNRESPONSIVE TO STIMULI [None]
